FAERS Safety Report 8243909 (Version 3)
Quarter: 2012Q4

REPORT INFORMATION
  Report Type: 
  Country: US (occurrence: US)
  Receive Date: 20111114
  Receipt Date: 20120904
  Transmission Date: 20130627
  Serious: Yes (Hospitalization, Other)
  Sender: FDA-Public Use
  Company Number: US-BAYER-2011-107577

PATIENT
  Age: 47 Year
  Sex: Female
  Weight: 68.03 kg

DRUGS (5)
  1. YAZ [Suspect]
     Dosage: UNK
     Dates: start: 200803, end: 200812
  2. FERROUS SULFATE [Concomitant]
     Dosage: 324 mg, 1 tablet twice daily
     Route: 048
     Dates: start: 20100204
  3. LISINOPRIL [Concomitant]
     Dosage: 10 mg, 1 tablet daily
     Route: 048
     Dates: start: 20100204
  4. FEXOFENADINE HYDROCHLORIDE [Concomitant]
     Indication: RHINITIS ALLERGIC
     Dosage: 180 mg, PRN 1 tablet daily
     Route: 048
     Dates: start: 20100204
  5. OMEPRAZOLE [Concomitant]
     Dosage: 20 mg, capsule delayed release 1 tablet daily
     Route: 048
     Dates: start: 20100204

REACTIONS (7)
  - Cholelithiasis [None]
  - Cholecystitis chronic [None]
  - Thrombosis [None]
  - Venous thrombosis [None]
  - Blood pressure increased [None]
  - Pain [None]
  - Emotional distress [None]
